FAERS Safety Report 10547772 (Version 2)
Quarter: 2014Q4

REPORT INFORMATION
  Report Type: Spontaneous
  Country: FR (occurrence: FR)
  Receive Date: 20141028
  Receipt Date: 20141028
  Transmission Date: 20150529
  Serious: Yes (Hospitalization, Other)
  Sender: FDA-Public Use
  Company Number: FR-AUROBINDO-AUR-APL-2014-07889

PATIENT
  Age: 52 Year
  Sex: Female

DRUGS (7)
  1. HERCEPTIN [Suspect]
     Active Substance: TRASTUZUMAB
     Indication: BREAST CANCER
     Dosage: 385 MG, CYCLICAL
     Route: 042
     Dates: start: 20140418, end: 20140418
  2. ONDANSETRON. [Suspect]
     Active Substance: ONDANSETRON
     Indication: PREMEDICATION
     Dosage: 8 MG, SINGLE
     Route: 042
     Dates: start: 20140418, end: 20140418
  3. HERCEPTIN [Suspect]
     Active Substance: TRASTUZUMAB
     Dosage: 6 MG/KG, UNK
     Route: 042
     Dates: start: 20140530
  4. METHYLPREDNISOLONE                 /00049602/ [Suspect]
     Active Substance: METHYLPREDNISOLONE
     Indication: PREMEDICATION
     Dosage: 80MG, SINGLE
     Route: 042
     Dates: start: 20140418, end: 20140418
  5. FARMORUBICINE [Suspect]
     Active Substance: EPIRUBICIN HYDROCHLORIDE
     Indication: BREAST CANCER
     Dosage: 120 MG, CYCLICAL
     Route: 065
     Dates: start: 20140128
  6. DOCETAXEL. [Suspect]
     Active Substance: DOCETAXEL
     Indication: BREAST CANCER
     Dosage: 160 MG, CYCLICAL
     Route: 042
     Dates: start: 20140418, end: 20140418
  7. ENDOXAN                            /00021101/ [Suspect]
     Active Substance: CYCLOPHOSPHAMIDE
     Indication: BREAST CANCER
     Dosage: 1200 MG, CYCLICAL
     Route: 065
     Dates: start: 20140128

REACTIONS (7)
  - Muscle spasms [Unknown]
  - Neutropenia [Unknown]
  - Vocal cord paralysis [Recovered/Resolved]
  - Mucosal inflammation [Unknown]
  - Dyspnoea [Unknown]
  - Fungal infection [Unknown]
  - Nodule [Unknown]

NARRATIVE: CASE EVENT DATE: 20140420
